FAERS Safety Report 18877763 (Version 1)
Quarter: 2021Q1

REPORT INFORMATION
  Report Type: Spontaneous
  Country: US (occurrence: US)
  Receive Date: 20210211
  Receipt Date: 20210211
  Transmission Date: 20210420
  Serious: Yes (Disabling)
  Sender: FDA-Public Use
  Company Number: None

PATIENT
  Age: 23 Year
  Sex: Male
  Weight: 90 kg

DRUGS (1)
  1. CIPROFLOXACIN. [Suspect]
     Active Substance: CIPROFLOXACIN
     Indication: DIARRHOEA INFECTIOUS
     Route: 048

REACTIONS (6)
  - Muscle injury [None]
  - Quality of life decreased [None]
  - Tendon injury [None]
  - Pain in jaw [None]
  - Gait disturbance [None]
  - Grip strength decreased [None]

NARRATIVE: CASE EVENT DATE: 20140120
